FAERS Safety Report 19855812 (Version 1)
Quarter: 2021Q3

REPORT INFORMATION
  Report Type: Spontaneous
  Country: US (occurrence: US)
  Receive Date: 20210916
  Receipt Date: 20210916
  Transmission Date: 20211014
  Serious: No
  Sender: FDA-Public Use
  Company Number: None

PATIENT
  Sex: Female
  Weight: 85.73 kg

DRUGS (8)
  1. ADDERALL [Concomitant]
     Active Substance: AMPHETAMINE ASPARTATE\AMPHETAMINE SULFATE\DEXTROAMPHETAMINE SACCHARATE\DEXTROAMPHETAMINE SULFATE
  2. DALFAMPRIDINE ER [Concomitant]
     Active Substance: DALFAMPRIDINE
  3. GABAPENTIN. [Concomitant]
     Active Substance: GABAPENTIN
  4. NAPROXEN. [Concomitant]
     Active Substance: NAPROXEN
  5. TOLTERODINE [Concomitant]
     Active Substance: TOLTERODINE
  6. KESIMPTA [Suspect]
     Active Substance: OFATUMUMAB
     Route: 058
     Dates: start: 202105
  7. DESMOPRESSIN ACETATE. [Concomitant]
     Active Substance: DESMOPRESSIN ACETATE
  8. BACLOFEN. [Concomitant]
     Active Substance: BACLOFEN

REACTIONS (4)
  - Multiple allergies [None]
  - Fatigue [None]
  - Urinary tract infection [None]
  - Influenza like illness [None]
